FAERS Safety Report 5975549-0 (Version None)
Quarter: 2008Q4

REPORT INFORMATION
  Report Type: 
  Country: None (occurrence: None)
  Receive Date: 20081202
  Receipt Date: 20081105
  Transmission Date: 20090506
  Serious: No
  Sender: FDA-Public Use
  Company Number: US-BAYER-200837891NA

PATIENT
  Age: 74 Year
  Sex: Female

DRUGS (1)
  1. MAGNEVIST [Suspect]
     Indication: OSTEOMYELITIS
     Dosage: TOTAL DAILY DOSE: 20 ML
     Route: 042
     Dates: start: 20081028, end: 20081028

REACTIONS (1)
  - URTICARIA [None]
